FAERS Safety Report 4629987-9 (Version None)
Quarter: 2005Q2

REPORT INFORMATION
  Report Type: 
  Country: None (occurrence: None)
  Receive Date: 20050408
  Receipt Date: 20050329
  Transmission Date: 20051028
  Serious: Yes (Death, Life-Threatening, Other)
  Sender: FDA-Public Use
  Company Number: US-GLAXOSMITHKLINE-A0551642A

PATIENT
  Age: 50 Year
  Sex: Male
  Weight: 81 kg

DRUGS (2)
  1. TUMS E-X TABLETS, TROPICAL FRUIT [Suspect]
     Route: 048
  2. PREVIDENT [Concomitant]
     Indication: GINGIVITIS

REACTIONS (2)
  - INTENTIONAL MISUSE [None]
  - MYOCARDIAL INFARCTION [None]
